FAERS Safety Report 4555966-6 (Version None)
Quarter: 2005Q1

REPORT INFORMATION
  Report Type: 
  Country: None (occurrence: None)
  Receive Date: 20050119
  Receipt Date: 20050105
  Transmission Date: 20050727
  Serious: Yes (Other)
  Sender: FDA-Public Use
  Company Number: CA-JNJFOC-20050102298

PATIENT
  Sex: Female
  Weight: 50.8 kg

DRUGS (15)
  1. ORTHO EVRA [Suspect]
     Route: 062
     Dates: start: 20040803
  2. ORTHO EVRA [Suspect]
     Indication: MIGRAINE
     Route: 062
     Dates: start: 20040803
  3. SYMBICORT [Concomitant]
  4. SYMBICORT [Concomitant]
  5. VITAMIN B WITH IRON [Concomitant]
  6. MAGNESIUM [Concomitant]
  7. PROGESTERONE CREAM [Concomitant]
     Route: 061
  8. PREGNENOLONE [Concomitant]
  9. ADVIL [Concomitant]
  10. FLORINAL [Concomitant]
  11. FLORINAL [Concomitant]
  12. FLORINAL [Concomitant]
  13. TECNAL [Concomitant]
  14. TECNAL [Concomitant]
  15. TECNAL [Concomitant]

REACTIONS (3)
  - ARTHRITIS [None]
  - INTENTIONAL MISUSE [None]
  - MIGRAINE [None]
